FAERS Safety Report 10825830 (Version 1)
Quarter: 2015Q1

REPORT INFORMATION
  Report Type: Spontaneous
  Country: US (occurrence: US)
  Receive Date: 20150219
  Receipt Date: 20150219
  Transmission Date: 20150721
  Serious: Yes (Hospitalization, Other)
  Sender: FDA-Public Use
  Company Number: US-DRREDDYS-USA/USA/15/0046049

PATIENT
  Age: 2 Year
  Sex: Male
  Weight: 13.5 kg

DRUGS (1)
  1. LAMOTRIGINE TABLETS [Suspect]
     Active Substance: LAMOTRIGINE
     Indication: SEIZURE
     Route: 048

REACTIONS (4)
  - Agitation [Recovered/Resolved]
  - Myoclonus [Recovered/Resolved]
  - Accidental exposure to product by child [Unknown]
  - Crying [Recovered/Resolved]
